FAERS Safety Report 5253638-6 (Version None)
Quarter: 2007Q1

REPORT INFORMATION
  Report Type: 
  Country: None (occurrence: None)
  Receive Date: 20070301
  Receipt Date: 20070219
  Transmission Date: 20070707
  Serious: Yes (Death, Hospitalization)
  Sender: FDA-Public Use
  Company Number: US-GILEAD-2007-0011357

PATIENT
  Age: 58 Year
  Sex: Male

DRUGS (6)
  1. VIREAD [Suspect]
     Indication: HIV INFECTION
     Route: 048
     Dates: start: 20070201
  2. VIREAD [Suspect]
     Route: 048
     Dates: start: 20070117, end: 20070130
  3. EMTRIVA [Suspect]
     Indication: HIV INFECTION
     Route: 048
     Dates: start: 20060905
  4. PREZISTA [Suspect]
     Indication: HIV INFECTION
     Route: 048
     Dates: start: 20060905
  5. VIDEX CC [Concomitant]
     Indication: HIV INFECTION
     Route: 048
     Dates: start: 20060905
  6. NORVIR [Concomitant]
     Indication: HIV INFECTION
     Route: 048
     Dates: start: 20060905

REACTIONS (2)
  - HEPATITIS B [None]
  - MULTI-ORGAN FAILURE [None]
